FAERS Safety Report 17782250 (Version 1)
Quarter: 2020Q2

REPORT INFORMATION
  Report Type: Spontaneous
  Country: US (occurrence: US)
  Receive Date: 20200513
  Receipt Date: 20200513
  Transmission Date: 20200714
  Serious: Yes (Congenital Anomaly)
  Sender: FDA-Public Use
  Company Number: US-TEVA-2020-US-1234121

PATIENT

DRUGS (3)
  1. DIVALPROEX [Suspect]
     Active Substance: DIVALPROEX SODIUM
     Indication: PARTIAL SEIZURES
     Dosage: 2000 MILLIGRAM DAILY;
     Route: 064
  2. BRIVARACETAM [Suspect]
     Active Substance: BRIVARACETAM
     Indication: PARTIAL SEIZURES
     Dosage: 150 MILLIGRAM DAILY;
     Route: 064
  3. FOLIC ACID. [Concomitant]
     Active Substance: FOLIC ACID
     Indication: SUPPLEMENTATION THERAPY
     Dosage: 4 MILLIGRAM DAILY;
     Route: 064

REACTIONS (2)
  - Foetal exposure during pregnancy [Unknown]
  - Haemangioma congenital [Unknown]
